FAERS Safety Report 5421520-7 (Version None)
Quarter: 2007Q3

REPORT INFORMATION
  Report Type: 
  Country: None (occurrence: None)
  Receive Date: 20070817
  Receipt Date: 20070803
  Transmission Date: 20080115
  Serious: Yes (Other)
  Sender: FDA-Public Use
  Company Number: B0482933A

PATIENT
  Age: 52 Year
  Sex: Male

DRUGS (1)
  1. NICODERM CQ [Suspect]
     Indication: DRUG WITHDRAWAL MAINTENANCE THERAPY
     Dosage: 21 MG TRANSDERMAL
     Route: 062

REACTIONS (5)
  - BLOOD TRIGLYCERIDES INCREASED [None]
  - CEREBELLAR ARTERY THROMBOSIS [None]
  - CEREBELLAR INFARCTION [None]
  - LOW DENSITY LIPOPROTEIN INCREASED [None]
  - TREATMENT NONCOMPLIANCE [None]
